FAERS Safety Report 21955133 (Version 1)
Quarter: 2023Q1

REPORT INFORMATION
  Report Type: Spontaneous
  Country: IT (occurrence: IT)
  Receive Date: 20230206
  Receipt Date: 20230206
  Transmission Date: 20230417
  Serious: Yes (Hospitalization, Other)
  Sender: FDA-Public Use
  Company Number: IT-JNJFOC-20220313202

PATIENT
  Age: 66 Year
  Sex: Male

DRUGS (28)
  1. VALGANCICLOVIR [Suspect]
     Active Substance: VALGANCICLOVIR
     Indication: Product used for unknown indication
     Dosage: UNK
     Route: 048
  2. CYCLOPHOSPHAMIDE [Suspect]
     Active Substance: CYCLOPHOSPHAMIDE
     Indication: Renal failure
     Dosage: 350 MILLIGRAM (350 MG ON DAYS 1, 8, 15 1, 8, 15,22, EACH OF THESE FOR 35 DAYS)
     Route: 048
  3. CYCLOPHOSPHAMIDE [Suspect]
     Active Substance: CYCLOPHOSPHAMIDE
     Indication: Monoclonal gammopathy
  4. CYCLOPHOSPHAMIDE [Suspect]
     Active Substance: CYCLOPHOSPHAMIDE
     Indication: Glomerulonephritis proliferative
  5. DARZALEX [Suspect]
     Active Substance: DARATUMUMAB
     Indication: Monoclonal gammopathy
     Dosage: 16 MILLIGRAM/KILOGRAM, EVERY WEEK (16 MILLIGRAM/KILOGRAM, QW)
     Route: 042
  6. GANCICLOVIR [Suspect]
     Active Substance: GANCICLOVIR
     Indication: Cytomegalovirus infection
     Dosage: 3.75 MG/KG, EVERY WEEK
     Route: 065
  7. MEROPENEM [Concomitant]
     Active Substance: MEROPENEM
     Indication: Antibiotic therapy
     Dosage: UNK
     Route: 065
  8. ANAGRELIDE [Concomitant]
     Active Substance: ANAGRELIDE
     Indication: Thrombocytosis
     Dosage: UNK
     Route: 065
  9. BORTEZOMIB [Concomitant]
     Active Substance: BORTEZOMIB
     Indication: Monoclonal gammopathy
     Dosage: 1.3 MILLIGRAM/SQ. METER (1.3 MG/M2 ON DAYS 1, 8, 15, 22 1, 8, 15,22, EACH OF THESE FOR 35 DAYS)
     Route: 058
  10. BORTEZOMIB [Concomitant]
     Active Substance: BORTEZOMIB
     Indication: Glomerulonephritis proliferative
  11. ACYCLOVIR [Concomitant]
     Active Substance: ACYCLOVIR
     Indication: Prophylaxis
     Dosage: UNK
     Route: 065
  12. COTRIMOXAZOLE [Concomitant]
     Active Substance: SULFAMETHOXAZOLE\TRIMETHOPRIM
     Indication: Antibiotic prophylaxis
     Dosage: UNK (UNK 4 WEEK)
     Route: 065
  13. COTRIMOXAZOLE [Concomitant]
     Active Substance: SULFAMETHOXAZOLE\TRIMETHOPRIM
     Indication: Prophylaxis
  14. CYCLOPHOSPHAMIDE [Concomitant]
     Active Substance: CYCLOPHOSPHAMIDE
     Indication: Glomerulonephritis proliferative
     Dosage: 1000 MILLIGRAM (1000 MILLIGRAM, MONTHLY (500 MG, EVERY 2 WEEKS)
     Route: 042
  15. CYCLOPHOSPHAMIDE [Concomitant]
     Active Substance: CYCLOPHOSPHAMIDE
     Indication: Renal failure
     Dosage: UNK (8 CYCLES , DAYS 1, 8, 15 + )
     Route: 042
  16. CYCLOPHOSPHAMIDE [Concomitant]
     Active Substance: CYCLOPHOSPHAMIDE
     Indication: Monoclonal gammopathy
     Dosage: UNK (2 WEEKS)
     Route: 042
  17. DEXAMETHASONE [Concomitant]
     Active Substance: DEXAMETHASONE
     Indication: Glomerulonephritis proliferative
     Dosage: 20 MILLIGRAM (20 MG ON THE DAY OF CHEMOTHERAPY)
     Route: 048
  18. DEXAMETHASONE [Concomitant]
     Active Substance: DEXAMETHASONE
     Indication: Monoclonal gammopathy
     Dosage: 20 MILLIGRAM (20 MG ON DAYS 1, 8, 15,22, EACH OF THESE FOR 35 DAYS)
     Route: 065
  19. DARATUMUMAB [Concomitant]
     Active Substance: DARATUMUMAB
     Indication: Glomerulonephritis proliferative
     Dosage: 32 MILLIGRAM (32 MILLIGRAM, MONTHLY (16 MG EVERY 2 WEEKS))
     Route: 065
  20. DARATUMUMAB [Concomitant]
     Active Substance: DARATUMUMAB
     Indication: Monoclonal gammopathy
     Dosage: 32 MILLIGRAM/KILOGRAM (32 MILLIGRAM/KILOGRAM, MONTHLY)
     Route: 065
  21. DARATUMUMAB [Concomitant]
     Active Substance: DARATUMUMAB
     Dosage: 16 MILLIGRAM/KILOGRAM, EVERY WEEK (16 MILLIGRAM/KILOGRAM, QW)
     Route: 042
  22. FLUCONAZOLE [Concomitant]
     Active Substance: FLUCONAZOLE
     Indication: Prophylaxis
     Dosage: UNK
     Route: 065
  23. LENALIDOMIDE [Concomitant]
     Active Substance: LENALIDOMIDE
     Indication: Glomerulonephritis proliferative
     Dosage: UNK, (D-RD REGIMEN)
     Route: 065
  24. LENALIDOMIDE [Concomitant]
     Active Substance: LENALIDOMIDE
     Indication: Monoclonal gammopathy
  25. METHYLPREDNISOLONE [Concomitant]
     Active Substance: METHYLPREDNISOLONE
     Indication: Renal failure
     Dosage: 125 MILLIGRAM, ONCE A DAY (125 MILLIGRAM, QD)
     Route: 042
  26. PREDNISONE [Concomitant]
     Active Substance: PREDNISONE
     Indication: Renal failure
     Dosage: 50 MILLIGRAM
     Route: 048
  27. TEICOPLANIN [Concomitant]
     Active Substance: TEICOPLANIN
     Indication: Antibiotic therapy
     Dosage: UNK (BROAD-SPECTRUM ANTIBIOTIC THERAPY )
     Route: 065
  28. VORICONAZOLE [Concomitant]
     Active Substance: VORICONAZOLE
     Indication: Product used for unknown indication
     Dosage: UNK
     Route: 065

REACTIONS (18)
  - Aspergillus test positive [Recovered/Resolved]
  - Acinetobacter infection [Unknown]
  - Aspergillus infection [Unknown]
  - Cutaneous vasculitis [Unknown]
  - Cytomegalovirus infection [Unknown]
  - Febrile neutropenia [Unknown]
  - Cytomegalovirus test positive [Recovered/Resolved]
  - Neutropenia [Unknown]
  - Nephrotic syndrome [Unknown]
  - Oedema peripheral [Unknown]
  - Pneumonia [Unknown]
  - Petechiae [Unknown]
  - Pleural effusion [Unknown]
  - Renal impairment [Recovering/Resolving]
  - Off label use [Unknown]
  - Product use in unapproved indication [Unknown]
  - Drug ineffective [Unknown]
  - Hypersensitivity [Unknown]
